FAERS Safety Report 21245802 (Version 1)
Quarter: 2022Q3

REPORT INFORMATION
  Report Type: Spontaneous
  Country: IN (occurrence: IN)
  Receive Date: 20220824
  Receipt Date: 20220824
  Transmission Date: 20221027
  Serious: Yes (Hospitalization, Other)
  Sender: FDA-Public Use
  Company Number: IN-SUN PHARMACEUTICAL INDUSTRIES LTD-2022R1-349536

PATIENT
  Age: 25 Year
  Sex: Female

DRUGS (1)
  1. PHENYTOIN [Suspect]
     Active Substance: PHENYTOIN
     Indication: Seizure
     Dosage: 200 MILLIGRAM, DAILY
     Route: 065

REACTIONS (3)
  - Anticonvulsant drug level increased [Unknown]
  - Toxicity to various agents [Unknown]
  - Ataxia [Recovered/Resolved]
